FAERS Safety Report 4703159-1 (Version None)
Quarter: 2005Q2

REPORT INFORMATION
  Report Type: 
  Country: None (occurrence: None)
  Receive Date: 20050629
  Receipt Date: 20050531
  Transmission Date: 20051028
  Serious: Yes (Hospitalization)
  Sender: FDA-Public Use
  Company Number: GB-BRISTOL-MYERS SQUIBB COMPANY-12992632

PATIENT
  Age: 70 Year
  Sex: Female

DRUGS (3)
  1. CETUXIMAB [Suspect]
     Indication: NON-SMALL CELL LUNG CANCER
     Dosage: 1ST AND MOST RECENT CETUXIMAB INFUSION ADMINISTERED ON 27-MAY-2005.
     Route: 041
     Dates: start: 20050527
  2. CISPLATIN [Suspect]
     Indication: NON-SMALL CELL LUNG CANCER
     Dosage: 1ST AND MOST RECENT CISPLATIN INFUSION ADMINISTERED ON 27-MAY-2005.
     Route: 042
     Dates: start: 20050527
  3. VINORELBINE [Suspect]
     Indication: NON-SMALL CELL LUNG CANCER
     Dosage: 1ST AND MOST RECENT VINORELBINE INFUSION ADMINISTERED ON 27-MAY-2005.
     Route: 042
     Dates: start: 20050527

REACTIONS (5)
  - ASTHENIA [None]
  - CHILLS [None]
  - MALAISE [None]
  - NECK PAIN [None]
  - PYREXIA [None]
